FAERS Safety Report 12333046 (Version 1)
Quarter: 2016Q2

REPORT INFORMATION
  Report Type: Report from Study
  Country: US (occurrence: US)
  Receive Date: 20160504
  Receipt Date: 20160504
  Transmission Date: 20160815
  Serious: Yes (Other)
  Sender: FDA-Public Use
  Company Number: US-PFIZER INC-2015198012

PATIENT

DRUGS (2)
  1. NELFINAVIR MESILATE [Suspect]
     Active Substance: NELFINAVIR MESYLATE
  2. LAMIVUDINE AND ZIDOVUDINE [Suspect]
     Active Substance: LAMIVUDINE\ZIDOVUDINE

REACTIONS (1)
  - Drug-induced liver injury [Unknown]
